FAERS Safety Report 13507179 (Version 1)
Quarter: 2017Q2

REPORT INFORMATION
  Report Type: Report from Study
  Country: None (occurrence: US)
  Receive Date: 20170503
  Receipt Date: 20170503
  Transmission Date: 20170830
  Serious: Yes (Hospitalization)
  Sender: FDA-Public Use
  Company Number: US-ABBVIE-17K-163-1842510-00

PATIENT
  Sex: Male

DRUGS (1)
  1. HUMIRA [Suspect]
     Active Substance: ADALIMUMAB
     Indication: JUVENILE IDIOPATHIC ARTHRITIS
     Route: 058
     Dates: start: 20161216, end: 20170417

REACTIONS (13)
  - Viral infection [Unknown]
  - Myalgia [Unknown]
  - Abasia [Unknown]
  - Injection site rash [Recovered/Resolved]
  - Pain [Unknown]
  - Musculoskeletal pain [Recovering/Resolving]
  - Diarrhoea [Unknown]
  - Pyrexia [Unknown]
  - Back pain [Recovering/Resolving]
  - Asthenia [Unknown]
  - Injection site pain [Recovered/Resolved]
  - Muscular weakness [Unknown]
  - Pain in extremity [Recovering/Resolving]

NARRATIVE: CASE EVENT DATE: 2017
